FAERS Safety Report 11801280 (Version 1)
Quarter: 2015Q4

REPORT INFORMATION
  Report Type: Spontaneous
  Country: US (occurrence: US)
  Receive Date: 20151204
  Receipt Date: 20151204
  Transmission Date: 20160305
  Serious: No
  Sender: FDA-Public Use
  Company Number: US-PFIZER INC-2015406474

PATIENT
  Age: 71 Year
  Sex: Male
  Weight: 101 kg

DRUGS (12)
  1. WARFARIN [Concomitant]
     Active Substance: WARFARIN
     Indication: BLOOD DISORDER
     Dosage: 5 MG, UNK
  2. PLAVIX [Concomitant]
     Active Substance: CLOPIDOGREL BISULFATE
     Dosage: 75 MG, 1X/DAY
  3. VELPHORO [Concomitant]
     Active Substance: FERRIC OXYHYDROXIDE
     Indication: BLOOD PRESSURE ABNORMAL
  4. VITAMIN D2 [Concomitant]
     Active Substance: ERGOCALCIFEROL
     Dosage: 50000UNITS; 1.25 MG, WEEKLY
  5. LYRICA [Suspect]
     Active Substance: PREGABALIN
     Indication: NEUROPATHY PERIPHERAL
     Dosage: 75 MG, 2X/DAY
     Route: 048
     Dates: start: 20151121
  6. WARFARIN [Concomitant]
     Active Substance: WARFARIN
     Indication: DIALYSIS
     Dosage: 1 DF, MAY TAKE ONE TODAY
  7. VELPHORO [Concomitant]
     Active Substance: FERRIC OXYHYDROXIDE
     Indication: BLOOD PHOSPHORUS
  8. GLIPIZIDE. [Concomitant]
     Active Substance: GLIPIZIDE
     Indication: BLOOD GLUCOSE ABNORMAL
     Dosage: 5 MG, 1X/DAY
  9. LYRICA [Suspect]
     Active Substance: PREGABALIN
     Indication: DIABETIC NEPHROPATHY
  10. WARFARIN [Concomitant]
     Active Substance: WARFARIN
     Dosage: 0.5 DF, 1/2 TABLET TOMORROW
  11. VELPHORO [Concomitant]
     Active Substance: FERRIC OXYHYDROXIDE
     Indication: RENAL DISORDER
     Dosage: 500 MG, 1X/DAY WITH EACH MEAL
  12. AMIODARONE [Concomitant]
     Active Substance: AMIODARONE
     Indication: ATRIAL FIBRILLATION
     Dosage: 200 MG, TAKES MONDAY-FRIDAY

REACTIONS (2)
  - Dysstasia [Not Recovered/Not Resolved]
  - Muscular weakness [Not Recovered/Not Resolved]

NARRATIVE: CASE EVENT DATE: 20151121
